FAERS Safety Report 14804929 (Version 4)
Quarter: 2018Q2

REPORT INFORMATION
  Report Type: Spontaneous
  Country: PR (occurrence: US)
  Receive Date: 20180425
  Receipt Date: 20180528
  Transmission Date: 20180711
  Serious: Yes (Other)
  Sender: FDA-Public Use
  Company Number: US-APOTEX-2018AP011225

PATIENT
  Age: 41 Year
  Sex: Male

DRUGS (2)
  1. PAXIL [Suspect]
     Active Substance: PAROXETINE HYDROCHLORIDE
     Indication: PRODUCT USED FOR UNKNOWN INDICATION
     Dosage: 20 MG, QD
     Route: 065
  2. XANAX [Suspect]
     Active Substance: ALPRAZOLAM
     Indication: PRODUCT USED FOR UNKNOWN INDICATION
     Dosage: UNK
     Route: 065

REACTIONS (18)
  - Hallucination [Unknown]
  - Suicide attempt [Unknown]
  - Suicidal ideation [Unknown]
  - Palpitations [Unknown]
  - Chest discomfort [Unknown]
  - Agitation [Unknown]
  - Anxiety [Unknown]
  - Heart rate abnormal [Unknown]
  - Sensory disturbance [Unknown]
  - Blindness [Unknown]
  - Withdrawal syndrome [Unknown]
  - Frustration tolerance decreased [Unknown]
  - Infertility male [Unknown]
  - Depression [Unknown]
  - Insomnia [Unknown]
  - Tachycardia [Unknown]
  - Panic attack [Unknown]
  - Weight decreased [Unknown]

NARRATIVE: CASE EVENT DATE: 201709
